FAERS Safety Report 25055245 (Version 3)
Quarter: 2025Q2

REPORT INFORMATION
  Report Type: Report from Study
  Country: IL (occurrence: IL)
  Receive Date: 20250308
  Receipt Date: 20250411
  Transmission Date: 20250717
  Serious: Yes (Hospitalization)
  Sender: ABBVIE
  Company Number: IL-ABBVIE-5955419

PATIENT
  Age: 81 Year
  Sex: Male

DRUGS (2)
  1. CARBIDOPA\LEVODOPA [Suspect]
     Active Substance: CARBIDOPA\LEVODOPA
     Indication: Parkinson^s disease
     Route: 050
  2. CARBIDOPA\LEVODOPA [Suspect]
     Active Substance: CARBIDOPA\LEVODOPA
     Route: 050
     Dates: start: 20220830

REACTIONS (8)
  - Embedded device [Recovered/Resolved]
  - Stoma site discharge [Unknown]
  - Dyskinesia [Unknown]
  - Gait inability [Unknown]
  - Abdominal wall wound [Unknown]
  - Device occlusion [Unknown]
  - Impaired healing [Unknown]
  - Stoma site erythema [Unknown]
